FAERS Safety Report 10585567 (Version 1)
Quarter: 2014Q4

REPORT INFORMATION
  Report Type: Spontaneous
  Country: FR (occurrence: None)
  Receive Date: 20141113
  Receipt Date: 20141113
  Transmission Date: 20150529
  Serious: Yes (Hospitalization)
  Sender: FDA-Public Use
  Company Number: 7332761

PATIENT
  Age: 67 Year
  Sex: Female

DRUGS (1)
  1. LEVOTHYROX [Suspect]
     Active Substance: LEVOTHYROXINE
     Indication: SUICIDE ATTEMPT
     Dosage: 3.375 MG (125 MCG, 27 IN 1 D), ORAL
     Route: 048
     Dates: start: 20140802, end: 20140802

REACTIONS (5)
  - Atrial flutter [None]
  - Intentional overdose [None]
  - Blindness unilateral [None]
  - Logorrhoea [None]
  - Nervousness [None]

NARRATIVE: CASE EVENT DATE: 20140802
